FAERS Safety Report 15114123 (Version 5)
Quarter: 2018Q4

REPORT INFORMATION
  Report Type: Spontaneous
  Country: US (occurrence: US)
  Receive Date: 20180706
  Receipt Date: 20181108
  Transmission Date: 20190204
  Serious: Yes (Hospitalization, Other)
  Sender: FDA-Public Use
  Company Number: US-ASTELLAS-2018US025093

PATIENT
  Age: 91 Year
  Sex: Male

DRUGS (1)
  1. XTANDI [Suspect]
     Active Substance: ENZALUTAMIDE
     Indication: PROSTATE CANCER
     Dosage: 160 MG, ONCE DAILY (4X40 MG)
     Route: 065

REACTIONS (12)
  - Gait inability [Unknown]
  - Meniscus injury [Unknown]
  - Fall [Unknown]
  - Infection [Not Recovered/Not Resolved]
  - Dyspnoea [Unknown]
  - Hot flush [Unknown]
  - Headache [Unknown]
  - Aphonia [Unknown]
  - Fatigue [Unknown]
  - Prostatic specific antigen abnormal [Unknown]
  - Pyrexia [Unknown]
  - Movement disorder [Not Recovered/Not Resolved]

NARRATIVE: CASE EVENT DATE: 20180526
